FAERS Safety Report 23776437 (Version 2)
Quarter: 2025Q2

REPORT INFORMATION
  Report Type: Report from Study
  Country: CA (occurrence: CA)
  Receive Date: 20240424
  Receipt Date: 20250430
  Transmission Date: 20250716
  Serious: Yes (Other)
  Sender: SANDOZ
  Company Number: CA-002147023-NVSC2023CA071992

PATIENT
  Age: 54 Year
  Sex: Male

DRUGS (1)
  1. HYRIMOZ [Suspect]
     Active Substance: ADALIMUMAB-ADAZ
     Indication: Crohn^s disease
     Dosage: 40 MG WEEKLY;WEEKLY
     Route: 058
     Dates: start: 20220527

REACTIONS (12)
  - Internal haemorrhage [Unknown]
  - General physical health deterioration [Unknown]
  - Accident at work [Unknown]
  - Fall [Unknown]
  - Rib fracture [Unknown]
  - Abdominal distension [Unknown]
  - Faeces soft [Unknown]
  - Injection site pain [Recovered/Resolved]
  - Diarrhoea [Unknown]
  - Insomnia [Unknown]
  - Drug ineffective [Unknown]
  - Off label use [Unknown]

NARRATIVE: CASE EVENT DATE: 20230209
